FAERS Safety Report 5815982-0 (Version None)
Quarter: 2008Q3

REPORT INFORMATION
  Report Type: 
  Country: None (occurrence: None)
  Receive Date: 20080721
  Receipt Date: 20080710
  Transmission Date: 20090109
  Serious: Yes (Hospitalization)
  Sender: FDA-Public Use
  Company Number: PHHY2008JP12806

PATIENT
  Age: 70 Year
  Sex: Female

DRUGS (6)
  1. DIOVAN [Suspect]
     Indication: HYPERTENSION
     Dosage: 80 MG, UNK
     Route: 048
     Dates: end: 20080622
  2. NORVASC [Suspect]
     Dosage: UNK
     Dates: end: 20080622
  3. ALLELOCK [Suspect]
     Dosage: UNK
     Dates: end: 20080622
  4. OSTEN [Suspect]
     Dosage: UNK
     Dates: end: 20080622
  5. WARFARIN SODIUM [Suspect]
     Dosage: UNK
     Dates: end: 20080622
  6. TAKEPRON [Suspect]

REACTIONS (4)
  - ALANINE AMINOTRANSFERASE INCREASED [None]
  - ASPARTATE AMINOTRANSFERASE INCREASED [None]
  - BLOOD CREATINE PHOSPHOKINASE INCREASED [None]
  - CELLULITIS [None]
